FAERS Safety Report 7222421-4 (Version None)
Quarter: 2011Q1

REPORT INFORMATION
  Report Type: 
  Country: None (occurrence: None)
  Receive Date: 20110104
  Receipt Date: 20101220
  Transmission Date: 20110831
  Serious: Yes (Hospitalization, Other)
  Sender: FDA-Public Use
  Company Number: TPH-00312

PATIENT

DRUGS (2)
  1. TRIQUILAR (ETHINYLESTRADIOL + LEVONORGESTREL) COATED TABLET [Suspect]
     Indication: CONTRACEPTION
     Dosage: TRANSPLACENTAL
     Route: 064
     Dates: end: 20091101
  2. CORTICOID [Concomitant]

REACTIONS (4)
  - CAESAREAN SECTION [None]
  - PREMATURE BABY [None]
  - PREMATURE RUPTURE OF MEMBRANES [None]
  - MATERNAL DRUGS AFFECTING FOETUS [None]
